FAERS Safety Report 5605311-X (Version None)
Quarter: 2008Q1

REPORT INFORMATION
  Report Type: 
  Country: None (occurrence: None)
  Receive Date: 20080124
  Receipt Date: 20080118
  Transmission Date: 20080703
  Serious: Yes (Other)
  Sender: FDA-Public Use
  Company Number: 2008SP001638

PATIENT
  Age: 56 Year
  Sex: Male
  Weight: 75.2971 kg

DRUGS (2)
  1. PEG-INTRON [Suspect]
     Indication: HEPATITIS C
     Dosage: SC
     Route: 058
     Dates: start: 20071005
  2. REBETOL [Suspect]
     Indication: HEPATITIS C
     Dosage: PO
     Route: 048
     Dates: start: 20071005

REACTIONS (10)
  - DENTAL CARIES [None]
  - DEPRESSION [None]
  - INSOMNIA [None]
  - LOOSE TOOTH [None]
  - MEMORY IMPAIRMENT [None]
  - PYREXIA [None]
  - SOMNAMBULISM [None]
  - THINKING ABNORMAL [None]
  - TOOTH LOSS [None]
  - WEIGHT INCREASED [None]
